FAERS Safety Report 14942431 (Version 4)
Quarter: 2019Q1

REPORT INFORMATION
  Report Type: Report from Study
  Country: CA (occurrence: CA)
  Receive Date: 20180528
  Receipt Date: 20190103
  Transmission Date: 20190417
  Serious: Yes (Other)
  Sender: FDA-Public Use
  Company Number: CA-BRISTOL-MYERS SQUIBB COMPANY-BMS-2017-117739

PATIENT
  Age: 73 Year
  Sex: Female

DRUGS (1)
  1. ABATACEPT [Suspect]
     Active Substance: ABATACEPT
     Indication: RHEUMATOID ARTHRITIS
     Dosage: 750 MG, Q4WK
     Route: 042
     Dates: start: 20171220

REACTIONS (7)
  - Atrial fibrillation [Not Recovered/Not Resolved]
  - Swelling [Unknown]
  - Pain [Unknown]
  - Transient ischaemic attack [Recovered/Resolved]
  - Cystitis [Recovering/Resolving]
  - Neck pain [Unknown]
  - Cataract [Unknown]

NARRATIVE: CASE EVENT DATE: 20180802
